FAERS Safety Report 12504140 (Version 3)
Quarter: 2016Q3

REPORT INFORMATION
  Report Type: Spontaneous
  Country: US (occurrence: US)
  Receive Date: 20160628
  Receipt Date: 20160829
  Transmission Date: 20161109
  Serious: Yes (Other)
  Sender: FDA-Public Use
  Company Number: US-PFIZER INC-2016277034

PATIENT
  Age: 63 Year
  Sex: Male
  Weight: 70 kg

DRUGS (35)
  1. VFEND [Suspect]
     Active Substance: VORICONAZOLE
     Indication: SPINAL CORD ABSCESS
  2. CALCIUM + VITAMIN D /01483701/ [Concomitant]
     Active Substance: CALCIUM\VITAMIN D
     Dosage: 1 DF, 2X/DAY (CALCIUM: 500 MG; VITAMIN D 200 MG)
     Route: 048
     Dates: start: 20160504
  3. CLONIDINE HCL [Concomitant]
     Active Substance: CLONIDINE HYDROCHLORIDE
     Dosage: 0.2 MG, 2X/DAY
     Route: 048
     Dates: start: 20160504
  4. FOLIC ACID. [Concomitant]
     Active Substance: FOLIC ACID
     Dosage: 1 MG, 1X/DAY
     Route: 048
     Dates: start: 20160505
  5. LEVEMIR [Concomitant]
     Active Substance: INSULIN DETEMIR
     Dosage: 15 IU, 1X/DAY (BEDTIME)
     Route: 058
     Dates: start: 20160523
  6. PANTOPRAZOLE SODIUM. [Concomitant]
     Active Substance: PANTOPRAZOLE SODIUM
     Dosage: 40 MG, 1X/DAY (EVERY MORNING)
     Route: 048
     Dates: start: 20160505
  7. TRAZODONE HYDROCHLORIDE. [Concomitant]
     Active Substance: TRAZODONE HYDROCHLORIDE
     Dosage: 100 MG, 4X/DAY
  8. VFEND [Suspect]
     Active Substance: VORICONAZOLE
     Indication: SYSTEMIC CANDIDA
     Dosage: 200 MG, 2X/DAY
     Route: 048
     Dates: start: 201605
  9. ERAXIS [Concomitant]
     Active Substance: ANIDULAFUNGIN
     Indication: CANDIDA INFECTION
     Dosage: UNK
     Route: 042
  10. FUROSEMIDE. [Concomitant]
     Active Substance: FUROSEMIDE
     Dosage: 20 MG, 1X/DAY
     Route: 048
     Dates: start: 20160515
  11. GABAPENTIN. [Concomitant]
     Active Substance: GABAPENTIN
     Dosage: 800 MG, 3X/DAY
  12. SPIRONOLACTONE. [Concomitant]
     Active Substance: SPIRONOLACTONE
     Dosage: 100 MG, 1X/DAY
     Route: 048
     Dates: start: 20160505
  13. THIAMINE HCL [Concomitant]
     Dosage: 100 MG, 1X/DAY
     Route: 048
     Dates: start: 20160505
  14. OMEPRAZOLE. [Concomitant]
     Active Substance: OMEPRAZOLE
     Dosage: 20 MG, UNK
  15. CELEBREX [Concomitant]
     Active Substance: CELECOXIB
     Dosage: 200 MG, UNK
  16. LORAZEPAM. [Concomitant]
     Active Substance: LORAZEPAM
     Dosage: 1 MG, AS NEEDED (EVERY 3 HOURS AS NEEDED)
     Route: 048
     Dates: start: 20160504
  17. MONTELUKAST SODIUM. [Concomitant]
     Active Substance: MONTELUKAST SODIUM
     Dosage: 10 MG, 1X/DAY (ADMIN ROUTE: PO/PT;EVERY EVENING )
     Route: 048
     Dates: start: 20160505
  18. LANTUS [Concomitant]
     Active Substance: INSULIN GLARGINE
     Dosage: UNK
  19. CEROVITE [Concomitant]
     Active Substance: FOLIC ACID\IRON
     Dosage: UNK, 1X/DAY
  20. GABAPENTIN. [Concomitant]
     Active Substance: GABAPENTIN
     Dosage: 600 MG, 1X/DAY (UNITS PER DOSE: 600 MG ; BEDTIME)
     Route: 048
     Dates: start: 20160514
  21. LEVEMIR [Concomitant]
     Active Substance: INSULIN DETEMIR
     Dosage: 15 IU, 1X/DAY (BEDTIME)
     Route: 058
     Dates: start: 20160524
  22. SPIRONOLACTONE. [Concomitant]
     Active Substance: SPIRONOLACTONE
     Dosage: 50 MG, UNK
  23. MYCAMINE [Suspect]
     Active Substance: MICAFUNGIN SODIUM
     Dosage: 100 MG, UNK
     Route: 042
     Dates: start: 20160624
  24. DEXTROSE. [Concomitant]
     Active Substance: DEXTROSE
     Dosage: 50 ML, AS NEEDED (DEXTROSE 50 % SOLN)
     Route: 042
     Dates: start: 20160504
  25. TRAZODONE HYDROCHLORIDE. [Concomitant]
     Active Substance: TRAZODONE HYDROCHLORIDE
     Indication: DEPRESSION
     Dosage: 100 MG, UNK (ADMIN ROUTE: PO/PT; FREQUENCY: BEDTIME)
     Route: 048
     Dates: start: 20160505
  26. VORICONAZOLE. [Concomitant]
     Active Substance: VORICONAZOLE
     Dosage: 200 MG, 2X/DAY
     Route: 048
     Dates: start: 20160525
  27. GLUTOSE [Concomitant]
     Active Substance: DEXTROSE
     Dosage: 15 G, AS NEEDED
     Route: 048
     Dates: start: 20160504
  28. LACTULOSE. [Concomitant]
     Active Substance: LACTULOSE
     Dosage: 30 ML, 2X/DAY (UNITS PER DOSE: 30ML/ADMIN)
     Route: 048
     Dates: start: 20160504
  29. MAGAL [Concomitant]
     Dosage: 30 ML, AS NEEDED (ADMIN ROUTE: PO/PT; THREE TIMES A DAY AS NEEDED)
     Dates: start: 20160504
  30. OXYCODONE HYDROCHLORIDE. [Concomitant]
     Active Substance: OXYCODONE HYDROCHLORIDE
     Dosage: 10 MG, AS NEEDED (EVERY FOUR HOURS AS NEEDED)
     Route: 048
     Dates: start: 20160504
  31. OYSCO [Concomitant]
     Dosage: 500 MG, UNK
  32. VITAMIN A + BETA CAROTENE [Concomitant]
     Dosage: 1 DF, 1X/DAY (ADMIN ROUTE: PO/PT)
     Route: 048
     Dates: start: 20160505
  33. ACETAMINOPHEN. [Concomitant]
     Active Substance: ACETAMINOPHEN
     Dosage: 650 MG, AS NEEDED (EVERY FOUR HOURS AS NEEDED)
     Route: 048
     Dates: start: 20160517
  34. NOVOLOG [Concomitant]
     Active Substance: INSULIN ASPART
     Dosage: 1 IU, UNK (SLIDING SCALE BEFORE MEALS AND)
     Route: 058
     Dates: start: 20160504
  35. DULOXETINE. [Concomitant]
     Active Substance: DULOXETINE
     Dosage: 60 MG, UNK

REACTIONS (2)
  - Arthritis infective [Recovering/Resolving]
  - Ligament rupture [Recovering/Resolving]

NARRATIVE: CASE EVENT DATE: 201605
